FAERS Safety Report 6331316-X (Version None)
Quarter: 2009Q3

REPORT INFORMATION
  Report Type: 
  Country: None (occurrence: None)
  Receive Date: 20090825
  Receipt Date: 20090817
  Transmission Date: 20100115
  Serious: Yes (Other)
  Sender: FDA-Public Use
  Company Number: CA-BRACCO-000195

PATIENT
  Sex: Male

DRUGS (3)
  1. MULTIHANCE [Suspect]
     Indication: NUCLEAR MAGNETIC RESONANCE IMAGING
     Route: 042
     Dates: start: 20090817, end: 20090817
  2. OXYGEN [Concomitant]
     Route: 055
     Dates: start: 20090817, end: 20090817
  3. BENADRYL [Concomitant]
     Route: 065
     Dates: start: 20090817, end: 20090817

REACTIONS (5)
  - BLOOD PRESSURE INCREASED [None]
  - DYSGEUSIA [None]
  - DYSPNOEA [None]
  - NAUSEA [None]
  - TREMOR [None]
